FAERS Safety Report 16080439 (Version 2)
Quarter: 2019Q1

REPORT INFORMATION
  Report Type: Report from Study
  Country: None (occurrence: ES)
  Receive Date: 20190315
  Receipt Date: 20190320
  Transmission Date: 20190418
  Serious: Yes (Death, Hospitalization)
  Sender: FDA-Public Use
  Company Number: ES-ABBVIE-19S-144-2705435-00

PATIENT
  Age: 69 Year
  Sex: Male
  Weight: 93 kg

DRUGS (1)
  1. DUODOPA [Suspect]
     Active Substance: CARBIDOPA\LEVODOPA
     Indication: PARKINSON^S DISEASE
     Route: 050
     Dates: start: 20150216

REACTIONS (5)
  - Coma [Fatal]
  - Intestinal obstruction [Fatal]
  - Urinary tract infection [Fatal]
  - Abdominal adhesions [Fatal]
  - Bronchospasm [Fatal]

NARRATIVE: CASE EVENT DATE: 2019
